FAERS Safety Report 5257316-9 (Version None)
Quarter: 2007Q1

REPORT INFORMATION
  Report Type: 
  Country: None (occurrence: None)
  Receive Date: 20061220
  Receipt Date: 20061011
  Transmission Date: 20070707
  Serious: No
  Sender: FDA-Public Use
  Company Number: 2006RL000367

PATIENT
  Age: 54 Year
  Sex: Male

DRUGS (7)
  1. OMACOR [Suspect]
     Indication: BLOOD TRIGLYCERIDES INCREASED
     Dosage: 4 GM; QD; PO
     Route: 048
     Dates: start: 20060901
  2. CELEXA [Concomitant]
  3. LITHIUM CARBONATE [Concomitant]
  4. REMERON [Concomitant]
  5. GEODON [Concomitant]
  6. KLONOPIN [Concomitant]
  7. QUESTRAN [Concomitant]

REACTIONS (3)
  - CONDITION AGGRAVATED [None]
  - INSOMNIA [None]
  - STRESS [None]
